FAERS Safety Report 5841329-X (Version None)
Quarter: 2008Q3

REPORT INFORMATION
  Report Type: 
  Country: None (occurrence: None)
  Receive Date: 20080812
  Receipt Date: 20080804
  Transmission Date: 20090109
  Serious: Yes (Other)
  Sender: FDA-Public Use
  Company Number: US-JNJFOC-20080604077

PATIENT
  Sex: Female
  Weight: 82.7 kg

DRUGS (3)
  1. REMICADE [Suspect]
     Route: 042
  2. REMICADE [Suspect]
     Route: 042
  3. REMICADE [Suspect]
     Indication: ANKYLOSING SPONDYLITIS
     Route: 042

REACTIONS (5)
  - BODY TEMPERATURE INCREASED [None]
  - HYPERTENSION [None]
  - HYPOAESTHESIA [None]
  - INFUSION RELATED REACTION [None]
  - PARAESTHESIA [None]
